FAERS Safety Report 5672259-4 (Version None)
Quarter: 2008Q1

REPORT INFORMATION
  Report Type: 
  Country: None (occurrence: None)
  Receive Date: 20080317
  Receipt Date: 20080311
  Transmission Date: 20080703
  Serious: Yes (Other)
  Sender: FDA-Public Use
  Company Number: 2008SP005034

PATIENT
  Age: 45 Year
  Sex: Female

DRUGS (2)
  1. PEG-INTRON [Suspect]
     Indication: HEPATITIS C
     Dosage: SC
     Route: 058
     Dates: start: 20071215
  2. RIBAVIRIN [Suspect]
     Indication: HEPATITIS C
     Dosage: PO
     Route: 048
     Dates: start: 20071215

REACTIONS (8)
  - CONDITION AGGRAVATED [None]
  - DEHYDRATION [None]
  - DIZZINESS [None]
  - INJECTION SITE ERYTHEMA [None]
  - MALAISE [None]
  - MENIERE'S DISEASE [None]
  - PYREXIA [None]
  - VERTIGO [None]
